FAERS Safety Report 11863711 (Version 2)
Quarter: 2016Q1

REPORT INFORMATION
  Report Type: Spontaneous
  Country: US (occurrence: US)
  Receive Date: 20151223
  Receipt Date: 20160121
  Transmission Date: 20160526
  Serious: Yes (Death)
  Sender: FDA-Public Use
  Company Number: US-PFIZER INC-2015447768

PATIENT
  Sex: Male

DRUGS (2)
  1. AMOXICILLIN/CLAVULANATE POTASSIUM [Suspect]
     Active Substance: AMOXICILLIN\CLAVULANATE POTASSIUM
     Dosage: 850 MG, UNK
  2. INLYTA [Suspect]
     Active Substance: AXITINIB
     Dosage: UNKNOWN

REACTIONS (1)
  - Death [Fatal]

NARRATIVE: CASE EVENT DATE: 201403
